FAERS Safety Report 4912164-1 (Version None)
Quarter: 2006Q1

REPORT INFORMATION
  Report Type: 
  Country: None (occurrence: None)
  Receive Date: 20060215
  Receipt Date: 20050818
  Transmission Date: 20060701
  Serious: No
  Sender: FDA-Public Use
  Company Number: US-GLAXOSMITHKLINE-A0570853A

PATIENT
  Age: 45 Year
  Sex: Female

DRUGS (1)
  1. VALTREX [Suspect]
     Dosage: 500MG PER DAY
     Route: 048

REACTIONS (3)
  - HERPES VIRUS INFECTION [None]
  - VULVAL DISORDER [None]
  - WEIGHT INCREASED [None]
